FAERS Safety Report 12331451 (Version 1)
Quarter: 2016Q2

REPORT INFORMATION
  Report Type: Spontaneous
  Country: JP (occurrence: JP)
  Receive Date: 20160504
  Receipt Date: 20160504
  Transmission Date: 20160815
  Serious: Yes (Other)
  Sender: FDA-Public Use
  Company Number: JP-FRESENIUS KABI-FK201602466

PATIENT
  Age: 78 Year
  Sex: Male

DRUGS (5)
  1. OXALIPLATIN (MANUFACTURER UNKNOWN) [Suspect]
     Active Substance: OXALIPLATIN
     Indication: HER-2 POSITIVE GASTRIC CANCER
     Route: 042
  2. DEXAMETHASONE. [Concomitant]
     Active Substance: DEXAMETHASONE
  3. FOSAPREPITANT [Concomitant]
     Active Substance: FOSAPREPITANT
  4. GIMERACIL/OTERACIL/TEGAFUR [Suspect]
     Active Substance: GIMERACIL\OTERACIL\TEGAFUR
     Indication: HER-2 POSITIVE GASTRIC CANCER
     Route: 048
  5. PALONOSETRON [Concomitant]
     Active Substance: PALONOSETRON

REACTIONS (1)
  - Inappropriate antidiuretic hormone secretion [Recovered/Resolved]
